FAERS Safety Report 5158388-2 (Version None)
Quarter: 2006Q4

REPORT INFORMATION
  Report Type: 
  Country: None (occurrence: None)
  Receive Date: 20061121
  Receipt Date: 20061121
  Transmission Date: 20070319
  Serious: Yes (Other)
  Sender: FDA-Public Use
  Company Number: None

PATIENT
  Age: 23 Year
  Sex: Male
  Weight: 68.0396 kg

DRUGS (1)
  1. CIPROFLOXACIN [Suspect]
     Indication: GENITOURINARY TRACT INFECTION
     Dosage: 500MG TWICE DAILY PO
     Route: 048
     Dates: start: 20061101, end: 20061114

REACTIONS (4)
  - ASTHENIA [None]
  - HYPOAESTHESIA [None]
  - NERVE INJURY [None]
  - NEUROPATHY PERIPHERAL [None]
